FAERS Safety Report 4897846-2 (Version None)
Quarter: 2006Q1

REPORT INFORMATION
  Report Type: 
  Country: None (occurrence: None)
  Receive Date: 20060201
  Receipt Date: 20050425
  Transmission Date: 20060701
  Serious: Yes (Hospitalization)
  Sender: FDA-Public Use
  Company Number: FR-GLAXOSMITHKLINE-B0379289A

PATIENT
  Age: 38 Year
  Sex: Female

DRUGS (1)
  1. IMIJECT [Suspect]
     Indication: CLUSTER HEADACHE
     Dosage: 5INJ PER DAY
     Route: 058
     Dates: start: 20050324, end: 20050421

REACTIONS (4)
  - DRUG ABUSER [None]
  - NORMAL DELIVERY [None]
  - PRE-ECLAMPSIA [None]
  - PREGNANCY INDUCED HYPERTENSION [None]
